FAERS Safety Report 6700400-0 (Version None)
Quarter: 2010Q2

REPORT INFORMATION
  Report Type: 
  Country: None (occurrence: None)
  Receive Date: 20100428
  Receipt Date: 20100331
  Transmission Date: 20101027
  Serious: No
  Sender: FDA-Public Use
  Company Number: JP-ROCHE-691285

PATIENT

DRUGS (1)
  1. TAMIFLU [Suspect]
     Indication: INFLUENZA
     Dosage: FORM: ORAL FORMATION (NOT OTHERWISE SPECIFIED)
     Route: 064
     Dates: start: 20091221, end: 20091225

REACTIONS (3)
  - CAESAREAN SECTION [None]
  - DRUG EXPOSURE DURING PREGNANCY [None]
  - NORMAL NEWBORN [None]
